FAERS Safety Report 5299695-2 (Version None)
Quarter: 2007Q2

REPORT INFORMATION
  Report Type: 
  Country: None (occurrence: None)
  Receive Date: 20070410
  Receipt Date: 20070326
  Transmission Date: 20071010
  Serious: Yes (Death, Other)
  Sender: FDA-Public Use
  Company Number: GXKR2007AU02924

PATIENT
  Age: 25 Year
  Sex: Male

DRUGS (9)
  1. VINCRISTINE (NGX) (VINSCRISTINE) UNKNOWN [Suspect]
     Indication: NON-HODGKIN'S LYMPHOMA
     Dosage: FOUR CYCLES, TOTAL
  2. DOXORUBICIN (NGX) (DOXORUBICIN) UNKNOWN [Suspect]
     Indication: NON-HODGKIN'S LYMPHOMA
     Dosage: 4 CYCLES, TOTAL
  3. DEXAMETHASONE [Suspect]
     Indication: NON-HODGKIN'S LYMPHOMA
     Dosage: 4 CYCLES, TOTAL
  4. METHOTREXATE [Suspect]
     Indication: NON-HODGKIN'S LYMPHOMA
     Dosage: SEE IMAGE
  5. CYTARABIN (NGX) (CYTARABINE) [Suspect]
     Indication: NON-HODGKIN'S LYMPHOMA
     Dosage: SEE IMAGE
  6. CYCLOPHOSPHAMIDE [Suspect]
     Indication: NON-HODGKIN'S LYMPHOMA
     Dosage: 4 CYCLES, TOTAL
  7. IDARUBICIN HCL [Suspect]
     Indication: NON-HODGKIN'S LYMPHOMA
     Dosage: INTRAVENOUS
     Route: 042
  8. FLUDARABINE PHOSPHATE [Suspect]
     Indication: NON-HODGKIN'S LYMPHOMA
     Dosage: INTRAVENOUS
     Route: 042
  9. RADIOTHERAPY (NO INGREDIENTS/SUBSTANCES) [Suspect]
     Indication: NON-HODGKIN'S LYMPHOMA
     Dosage: 40 GY IN 25 FRACTIONS OVER 36 DAYS

REACTIONS (13)
  - AREFLEXIA [None]
  - BK VIRUS INFECTION [None]
  - CEREBRAL HAEMORRHAGE [None]
  - CEREBRAL INFARCTION [None]
  - DRUG TOXICITY [None]
  - FEBRILE NEUTROPENIA [None]
  - GASTROINTESTINAL HAEMORRHAGE [None]
  - HAEMATURIA [None]
  - MYELOPATHY [None]
  - NO THERAPEUTIC RESPONSE [None]
  - NUCLEAR MAGNETIC RESONANCE IMAGING ABNORMAL [None]
  - PARALYSIS FLACCID [None]
  - SEPSIS [None]
